FAERS Safety Report 8359392-3 (Version None)
Quarter: 2012Q2

REPORT INFORMATION
  Report Type: 
  Country: None (occurrence: None)
  Receive Date: 20120515
  Receipt Date: 20120507
  Transmission Date: 20120825
  Serious: Yes (Hospitalization)
  Sender: FDA-Public Use
  Company Number: US-US-EMD SERONO, INC.-7121102

PATIENT
  Sex: Female
  Weight: 100 kg

DRUGS (6)
  1. ENABLEX [Concomitant]
     Indication: POLLAKIURIA
  2. LISINOPRIL [Concomitant]
     Indication: BLOOD PRESSURE ABNORMAL
  3. ZANAFLEX [Concomitant]
     Indication: MULTIPLE SCLEROSIS
  4. REBIF [Suspect]
     Indication: MULTIPLE SCLEROSIS
     Route: 058
     Dates: start: 20120222, end: 20120301
  5. CARVEDILOL [Concomitant]
     Indication: BLOOD PRESSURE ABNORMAL
  6. TRILEPTAL [Concomitant]
     Indication: MULTIPLE SCLEROSIS

REACTIONS (5)
  - HYPERTENSION [None]
  - NEURALGIA [None]
  - HYPOTENSION [None]
  - LOSS OF CONSCIOUSNESS [None]
  - INFLUENZA LIKE ILLNESS [None]
